FAERS Safety Report 9267151 (Version 1)
Quarter: 2013Q2

REPORT INFORMATION
  Report Type: Spontaneous
  Country: CO (occurrence: CO)
  Receive Date: 20130502
  Receipt Date: 20130502
  Transmission Date: 20140414
  Serious: Yes (Death)
  Sender: FDA-Public Use
  Company Number: CO-PFIZER INC-2013134703

PATIENT
  Age: 51 Year
  Sex: Male

DRUGS (4)
  1. ALDACTONE [Suspect]
     Indication: HEPATIC CIRRHOSIS
     Dosage: 100 MG, 1X/DAY
     Route: 048
     Dates: start: 201201, end: 201303
  2. OMEPRAZOL [Concomitant]
     Dosage: UNK
     Route: 048
     Dates: start: 201201, end: 201303
  3. HEPA-MERZ [Concomitant]
     Dosage: UNK
     Route: 065
     Dates: start: 201206
  4. PROPANOLOL [Concomitant]
     Indication: VARICES OESOPHAGEAL
     Dosage: 40 MG, 2X/DAY
     Route: 048

REACTIONS (2)
  - Renal failure [Fatal]
  - Hepatic cancer [Fatal]
